FAERS Safety Report 7216662-X (Version None)
Quarter: 2011Q1

REPORT INFORMATION
  Report Type: 
  Country: None (occurrence: None)
  Receive Date: 20110110
  Receipt Date: 20101229
  Transmission Date: 20110831
  Serious: No
  Sender: FDA-Public Use
  Company Number: US-BIOGENIDEC-2011BI000386

PATIENT
  Sex: Male

DRUGS (5)
  1. AVONEX [Concomitant]
     Route: 030
  2. AVONEX [Concomitant]
     Indication: MULTIPLE SCLEROSIS
     Route: 030
     Dates: start: 20100101
  3. TYSABRI [Suspect]
     Indication: MULTIPLE SCLEROSIS
     Route: 042
     Dates: start: 20100126
  4. AVONEX [Concomitant]
     Route: 030
     Dates: start: 20020304, end: 20060615
  5. AVONEX [Concomitant]
     Route: 030

REACTIONS (2)
  - MENISCUS LESION [None]
  - ROTATOR CUFF SYNDROME [None]
